FAERS Safety Report 9028962 (Version 2)
Quarter: 2013Q1

REPORT INFORMATION
  Report Type: Spontaneous
  Country: BR (occurrence: BR)
  Receive Date: 20130124
  Receipt Date: 20130131
  Transmission Date: 20140127
  Serious: Yes (Other)
  Sender: FDA-Public Use
  Company Number: BR-AMGEN-BRASP2012006719

PATIENT
  Age: 48 Year
  Sex: Female
  Weight: 62 kg

DRUGS (4)
  1. ENBREL [Suspect]
     Indication: RHEUMATOID ARTHRITIS
     Dosage: 50 MG, ONCE A WEEK
     Route: 058
     Dates: end: 201211
  2. ENBREL [Suspect]
     Dosage: UNK
     Dates: start: 201012
  3. PREDNISONE [Concomitant]
     Dosage: 20 MG, 1X/DAY
  4. METHOTREXATE [Concomitant]
     Dosage: 10 MG, PER WEEK

REACTIONS (7)
  - Rheumatoid arthritis [Unknown]
  - Arthralgia [Not Recovered/Not Resolved]
  - Pain in extremity [Not Recovered/Not Resolved]
  - Pyrexia [Recovered/Resolved]
  - Tooth infection [Recovered/Resolved]
  - Pharyngitis [Unknown]
  - Swelling [Unknown]
